FAERS Safety Report 9261592 (Version 1)
Quarter: 2013Q2

REPORT INFORMATION
  Report Type: Spontaneous
  Country: US (occurrence: US)
  Receive Date: 20130429
  Receipt Date: 20130503
  Transmission Date: 20140414
  Serious: Yes (Other)
  Sender: FDA-Public Use
  Company Number: US-PERRIGO-13US004474

PATIENT
  Age: 52 Year
  Sex: Male

DRUGS (1)
  1. ACETAMINOPHEN-ASPIRIN-CAFFEINE 1T1 [Suspect]
     Indication: HEADACHE
     Dosage: 2 TABLETS, SINGLE
     Route: 048
     Dates: start: 20130414, end: 20130414

REACTIONS (2)
  - Convulsion [Recovered/Resolved]
  - Off label use [Recovered/Resolved]
